FAERS Safety Report 11369354 (Version 1)
Quarter: 2015Q3

REPORT INFORMATION
  Report Type: Spontaneous
  Country: US (occurrence: US)
  Receive Date: 20150812
  Receipt Date: 20150812
  Transmission Date: 20151125
  Serious: No
  Sender: FDA-Public Use
  Company Number: US-JNJFOC-20150601963

PATIENT
  Age: 27 Year
  Sex: Female

DRUGS (1)
  1. STELARA [Suspect]
     Active Substance: USTEKINUMAB
     Indication: PSORIASIS
     Dosage: 0, 4, EVERY 12 WEEKS
     Route: 058

REACTIONS (3)
  - Headache [Unknown]
  - Vision blurred [Unknown]
  - Exposure during pregnancy [Not Recovered/Not Resolved]
